FAERS Safety Report 7086118-6 (Version None)
Quarter: 2010Q4

REPORT INFORMATION
  Report Type: 
  Country: None (occurrence: None)
  Receive Date: 20101105
  Receipt Date: 20101027
  Transmission Date: 20110411
  Serious: Yes (Hospitalization)
  Sender: FDA-Public Use
  Company Number: B0680795A

PATIENT
  Age: 54 Year
  Sex: Male

DRUGS (6)
  1. ARIXTRA [Suspect]
     Dosage: 2.5MG PER DAY
     Route: 065
     Dates: start: 20101008
  2. CARDACE [Concomitant]
     Dosage: 5MG PER DAY
  3. SELOKEN [Concomitant]
     Dosage: 50MG PER DAY
  4. ASPIRIN [Concomitant]
     Dosage: 325MG PER DAY
     Route: 048
  5. CEFUROXIME [Concomitant]
     Dosage: 75MG PER DAY
  6. ATORVASTATIN CALCIUM [Concomitant]
     Dosage: 80MG PER DAY

REACTIONS (2)
  - PRURITUS [None]
  - RASH ERYTHEMATOUS [None]
